FAERS Safety Report 4326891-0 (Version None)
Quarter: 2004Q1

REPORT INFORMATION
  Report Type: 
  Country: None (occurrence: None)
  Receive Date: 20040330
  Receipt Date: 20040328
  Transmission Date: 20041129
  Serious: Yes (Hospitalization)
  Sender: FDA-Public Use
  Company Number: IL-MERCK-0403ISR00008

PATIENT
  Age: 5 Year
  Sex: Male

DRUGS (2)
  1. SINGULAIR [Suspect]
     Indication: ASTHMA
     Route: 048
     Dates: start: 20010101, end: 20030101
  2. SINGULAIR [Suspect]
     Route: 048
     Dates: start: 20040201, end: 20040301

REACTIONS (1)
  - DIABETES MELLITUS INSULIN-DEPENDENT [None]
